FAERS Safety Report 21538152 (Version 1)
Quarter: 2022Q4

REPORT INFORMATION
  Report Type: Other
  Country: US (occurrence: US)
  Receive Date: 20221101
  Receipt Date: 20221101
  Transmission Date: 20230112
  Serious: No
  Sender: FDA-Public Use
  Company Number: US-DECIPHERA PHARMACEUTICALS LLC-2022US000847

PATIENT
  Sex: Female

DRUGS (1)
  1. QINLOCK [Suspect]
     Active Substance: RIPRETINIB
     Indication: Gastrointestinal stromal tumour
     Dosage: 100 MILLIGRAM, QD
     Route: 048
     Dates: start: 20211008

REACTIONS (7)
  - Nerve injury [Unknown]
  - Foot deformity [Unknown]
  - Dizziness [Unknown]
  - Gingival bleeding [Unknown]
  - Hypertension [Not Recovered/Not Resolved]
  - Myalgia [Unknown]
  - Alopecia [Unknown]
